FAERS Safety Report 6113716-6 (Version None)
Quarter: 2009Q1

REPORT INFORMATION
  Report Type: 
  Country: None (occurrence: None)
  Receive Date: 20090312
  Receipt Date: 20090309
  Transmission Date: 20090719
  Serious: Yes (Hospitalization, Other)
  Sender: FDA-Public Use
  Company Number: US-ELI_LILLY_AND_COMPANY-US200609002658

PATIENT
  Sex: Male

DRUGS (11)
  1. FORTEO [Suspect]
     Indication: OSTEOPOROSIS
     Dosage: 20 UG, DAILY (1/D)
     Dates: start: 20050801
  2. FORTEO [Suspect]
     Dosage: 20 UG, DAILY (1/D)
     Dates: end: 20060828
  3. CALCIUM WITH VITAMIN D [Concomitant]
     Dosage: 1500 MG, DAILY (1/D)
  4. AVODART /USA/ [Concomitant]
  5. FLOMAX [Concomitant]
  6. VITAMIN B-12 [Concomitant]
  7. ASCORBIC ACID [Concomitant]
  8. VITAMIN E [Concomitant]
  9. FLAXSEED OIL [Concomitant]
  10. MANGANESE [Concomitant]
  11. MINERAL TAB [Concomitant]

REACTIONS (15)
  - BODY HEIGHT DECREASED [None]
  - BONE DENSITY DECREASED [None]
  - HYPOTHYROIDISM [None]
  - KYPHOSIS [None]
  - LIVER DISORDER [None]
  - MULTIPLE FRACTURES [None]
  - MULTIPLE MYELOMA [None]
  - PAIN [None]
  - RENAL CELL CARCINOMA [None]
  - RENAL IMPAIRMENT [None]
  - RIB FRACTURE [None]
  - SPINAL FRACTURE [None]
  - STERNAL FRACTURE [None]
  - THYROID FUNCTION TEST ABNORMAL [None]
  - WHITE BLOOD CELL COUNT DECREASED [None]
